FAERS Safety Report 4903270-6 (Version None)
Quarter: 2006Q1

REPORT INFORMATION
  Report Type: 
  Country: None (occurrence: None)
  Receive Date: 20060113
  Receipt Date: 20050502
  Transmission Date: 20060701
  Serious: Yes (Other)
  Sender: FDA-Public Use
  Company Number: HQWYE115310OCT03

PATIENT
  Age: 51 Year
  Sex: Female
  Weight: 92.16 kg

DRUGS (2)
  1. PREMPRO [Suspect]
     Indication: HORMONE REPLACEMENT THERAPY
     Dosage: DAILY, ORAL
     Route: 048
  2. ESTROGENIC SUBSTANCE [Suspect]

REACTIONS (1)
  - BREAST CANCER [None]
